FAERS Safety Report 6876961-8 (Version None)
Quarter: 2010Q3

REPORT INFORMATION
  Report Type: 
  Country: None (occurrence: None)
  Receive Date: 20100727
  Receipt Date: 20100727
  Transmission Date: 20110219
  Serious: Yes (Other)
  Sender: FDA-Public Use
  Company Number: None

PATIENT
  Age: 63 Year
  Sex: Male
  Weight: 83.9154 kg

DRUGS (2)
  1. ACETAMINOPHEN [Suspect]
     Indication: SINUS HEADACHE
     Dosage: 500-100MG X2 FULL OR HALF DZ PO
     Route: 048
     Dates: start: 20100701, end: 20100723
  2. TRAMADOL HCL [Suspect]
     Indication: NEURALGIA
     Dosage: 100 MG X1 NIGHTLY PO
     Route: 048
     Dates: start: 20100511, end: 20100722

REACTIONS (5)
  - ANGIOEDEMA [None]
  - DYSPHAGIA [None]
  - INCREASED UPPER AIRWAY SECRETION [None]
  - PAIN [None]
  - VISION BLURRED [None]
